FAERS Safety Report 5742098-4 (Version None)
Quarter: 2008Q2

REPORT INFORMATION
  Report Type: 
  Country: None (occurrence: None)
  Receive Date: 20080519
  Receipt Date: 20080505
  Transmission Date: 20081010
  Serious: Yes (Hospitalization, Other)
  Sender: FDA-Public Use
  Company Number: US-MERCK-0705USA02807

PATIENT
  Age: 79 Year
  Sex: Female
  Weight: 100 kg

DRUGS (12)
  1. FOSAMAX [Suspect]
     Indication: OSTEOPOROSIS
     Route: 048
     Dates: start: 20011208
  2. FOSAMAX [Suspect]
     Route: 048
     Dates: start: 19990901, end: 20011207
  3. FOSAMAX [Suspect]
     Indication: OSTEOPENIA
     Route: 048
     Dates: start: 20011208
  4. FOSAMAX [Suspect]
     Route: 048
     Dates: start: 19990901, end: 20011207
  5. FOSAMAX PLUS D [Concomitant]
     Indication: OSTEOPOROSIS
     Route: 048
     Dates: start: 19980101
  6. CALCIUM (UNSPECIFIED) [Concomitant]
     Route: 065
  7. FERRUM [Concomitant]
     Route: 065
  8. HYZAAR [Concomitant]
     Route: 048
     Dates: start: 19990828
  9. HYZAAR [Concomitant]
     Route: 048
     Dates: end: 19990827
  10. ASCORBIC ACID [Concomitant]
     Route: 065
  11. VITAMIN E [Concomitant]
     Route: 065
  12. ASPIRIN [Concomitant]
     Route: 065

REACTIONS (28)
  - ANAEMIA [None]
  - ATRIAL FIBRILLATION [None]
  - BLADDER CANCER [None]
  - CARDIAC DISORDER [None]
  - CARDIAC MURMUR [None]
  - CARDIAC VALVE DISEASE [None]
  - CAUSTIC INJURY [None]
  - CELLULITIS [None]
  - CHEST PAIN [None]
  - CONTUSION [None]
  - DENTAL CARIES [None]
  - EXOSTOSIS [None]
  - FALL [None]
  - GASTROINTESTINAL HAEMORRHAGE [None]
  - GLUCOSE TOLERANCE IMPAIRED [None]
  - HYPERTENSION [None]
  - HYPERTROPHIC CARDIOMYOPATHY [None]
  - JAW DISORDER [None]
  - JOINT INJURY [None]
  - LEFT VENTRICLE OUTFLOW TRACT OBSTRUCTION [None]
  - MYOCARDIAL INFARCTION [None]
  - ORAL PAIN [None]
  - OSTEONECROSIS [None]
  - PARAESTHESIA [None]
  - SWELLING [None]
  - TRISMUS [None]
  - TYPE 2 DIABETES MELLITUS [None]
  - VENTRICULAR HYPERTROPHY [None]
